FAERS Safety Report 10856192 (Version 1)
Quarter: 2015Q1

REPORT INFORMATION
  Report Type: Spontaneous
  Country: US (occurrence: US)
  Receive Date: 20150223
  Receipt Date: 20150223
  Transmission Date: 20150721
  Serious: No
  Sender: FDA-Public Use
  Company Number: US-MYLANLABS-2014M1004076

PATIENT
  Age: 6 Year
  Sex: Male

DRUGS (2)
  1. GUANFACINE HYDROCHLORIDE. [Suspect]
     Active Substance: GUANFACINE HYDROCHLORIDE
     Indication: OFF LABEL USE
  2. GUANFACINE HYDROCHLORIDE. [Suspect]
     Active Substance: GUANFACINE HYDROCHLORIDE
     Indication: ATTENTION DEFICIT/HYPERACTIVITY DISORDER
     Dosage: UNK MG, UNK
     Dates: start: 20140728

REACTIONS (1)
  - Irritability [Not Recovered/Not Resolved]

NARRATIVE: CASE EVENT DATE: 201408
